FAERS Safety Report 7088123-2 (Version None)
Quarter: 2010Q4

REPORT INFORMATION
  Report Type: 
  Country: None (occurrence: None)
  Receive Date: 20101108
  Receipt Date: 20101029
  Transmission Date: 20110411
  Serious: Yes (Hospitalization, Other)
  Sender: FDA-Public Use
  Company Number: SE-NOVOPROD-309592

PATIENT
  Age: 42 Year
  Sex: Male
  Weight: 82 kg

DRUGS (12)
  1. VICTOZA [Suspect]
     Indication: DIABETES MELLITUS
     Dosage: 0.6 MG, UNK
     Route: 058
     Dates: start: 20100511, end: 20100518
  2. VICTOZA [Suspect]
     Dosage: 1.2 MG, UNK
     Route: 058
     Dates: start: 20100519, end: 20100522
  3. LANTUS [Concomitant]
     Indication: DIABETES MELLITUS
     Dosage: UNK
     Dates: end: 20100520
  4. LANTUS [Concomitant]
     Dosage: 42 U, UNK
  5. LANTUS [Concomitant]
     Dosage: 76 U, UNK
  6. APIDRA [Concomitant]
     Indication: DIABETES MELLITUS
  7. CLOPIDOGREL [Concomitant]
     Dosage: 75 MG, UNK
     Route: 048
  8. TROMBYL [Concomitant]
     Dosage: 75 MG, UNK
     Route: 048
  9. METOPROLOL [Concomitant]
     Dosage: 50 MG, UNK
     Route: 048
  10. ENALAPRIL MALEATE [Concomitant]
     Dosage: 20 MG, UNK
     Route: 048
  11. CRESTOR [Concomitant]
     Dosage: 40 MG, UNK
     Route: 048
  12. EEZIT [Concomitant]
     Dosage: 10 MG, UNK
     Route: 048

REACTIONS (1)
  - DIABETIC KETOACIDOSIS [None]
